FAERS Safety Report 11182173 (Version 2)
Quarter: 2015Q3

REPORT INFORMATION
  Report Type: Spontaneous
  Country: US (occurrence: US)
  Receive Date: 20150611
  Receipt Date: 20150914
  Transmission Date: 20151125
  Serious: Yes (Hospitalization)
  Sender: FDA-Public Use
  Company Number: US-ASTELLAS-2015US015308

PATIENT
  Sex: Male

DRUGS (2)
  1. XTANDI [Suspect]
     Active Substance: ENZALUTAMIDE
     Indication: PROSTATE CANCER METASTATIC
     Dosage: 160 MG (4X40 MG), ONCE DAILY
     Route: 065
     Dates: start: 201504
  2. XTANDI [Suspect]
     Active Substance: ENZALUTAMIDE
     Dosage: UNK, UNKNOWN FREQ.
     Route: 065
     Dates: start: 20150603

REACTIONS (8)
  - Cellulitis [Unknown]
  - Back pain [Recovered/Resolved]
  - Bedridden [Recovered/Resolved]
  - Drug dose omission [Unknown]
  - Decreased appetite [Recovered/Resolved]
  - Asthenia [Recovered/Resolved]
  - Pollakiuria [Recovered/Resolved]
  - Constipation [Recovered/Resolved]

NARRATIVE: CASE EVENT DATE: 2015
